FAERS Safety Report 24758880 (Version 1)
Quarter: 2024Q4

REPORT INFORMATION
  Report Type: Spontaneous
  Country: US (occurrence: US)
  Receive Date: 20241220
  Receipt Date: 20241220
  Transmission Date: 20250115
  Serious: Yes (Hospitalization)
  Sender: ACCORD
  Company Number: US-MLMSERVICE-20241202-PI276131-00152-1

PATIENT
  Age: 56 Year
  Sex: Male

DRUGS (12)
  1. FLUOROURACIL [Interacting]
     Active Substance: FLUOROURACIL
     Indication: Pancreatic carcinoma metastatic
     Dosage: FIRST LINE MFFX, CYCLE 1 DAY 7
  2. IRINOTECAN HYDROCHLORIDE [Interacting]
     Active Substance: IRINOTECAN HYDROCHLORIDE
     Indication: Pancreatic carcinoma metastatic
     Dosage: FIRST LINE MFFX, CYCLE 1 DAY 7
  3. LEUCOVORIN [Concomitant]
     Active Substance: LEUCOVORIN\LEUCOVORIN CALCIUM
     Indication: Pancreatic carcinoma metastatic
     Dosage: FIRST LINE MFFX, CYCLE 1 DAY 7
  4. OXALIPLATIN [Concomitant]
     Active Substance: OXALIPLATIN
     Indication: Pancreatic carcinoma metastatic
     Dosage: FIRST LINE MFFX, CYCLE 1 DAY 7
  5. OXALIPLATIN [Concomitant]
     Active Substance: OXALIPLATIN
     Indication: Metastases to liver
     Dosage: FIRST LINE MFFX, CYCLE 1 DAY 7
  6. LEUCOVORIN [Concomitant]
     Active Substance: LEUCOVORIN\LEUCOVORIN CALCIUM
     Indication: Metastases to liver
     Dosage: FIRST LINE MFFX, CYCLE 1 DAY 7
  7. FLUOROURACIL [Interacting]
     Active Substance: FLUOROURACIL
     Indication: Metastases to liver
     Dosage: FIRST LINE MFFX, CYCLE 1 DAY 7
  8. FLUOROURACIL [Interacting]
     Active Substance: FLUOROURACIL
     Indication: Metastases to lung
     Dosage: FIRST LINE MFFX, CYCLE 1 DAY 7
  9. IRINOTECAN HYDROCHLORIDE [Interacting]
     Active Substance: IRINOTECAN HYDROCHLORIDE
     Indication: Metastases to liver
     Dosage: FIRST LINE MFFX, CYCLE 1 DAY 7
  10. IRINOTECAN HYDROCHLORIDE [Interacting]
     Active Substance: IRINOTECAN HYDROCHLORIDE
     Indication: Metastases to lung
     Dosage: FIRST LINE MFFX, CYCLE 1 DAY 7
  11. OXALIPLATIN [Concomitant]
     Active Substance: OXALIPLATIN
     Indication: Metastases to lung
     Dosage: FIRST LINE MFFX, CYCLE 1 DAY 7
  12. LEUCOVORIN [Concomitant]
     Active Substance: LEUCOVORIN\LEUCOVORIN CALCIUM
     Indication: Metastases to lung
     Dosage: FIRST LINE MFFX, CYCLE 1 DAY 7

REACTIONS (3)
  - Encephalopathy [Recovering/Resolving]
  - Drug-genetic interaction [Unknown]
  - Myelosuppression [Recovered/Resolved]
